FAERS Safety Report 8082054-7 (Version None)
Quarter: 2012Q1

REPORT INFORMATION
  Report Type: 
  Country: None (occurrence: None)
  Receive Date: 20120127
  Receipt Date: 20110223
  Transmission Date: 20120608
  Serious: No
  Sender: FDA-Public Use
  Company Number: US-ABBOTT-11P-163-0707923-00

PATIENT
  Sex: Male
  Weight: 68.1 kg

DRUGS (1)
  1. HUMIRA [Suspect]
     Indication: ANKYLOSING SPONDYLITIS
     Route: 058
     Dates: start: 20101101, end: 20101101

REACTIONS (6)
  - MUSCULOSKELETAL PAIN [None]
  - INJECTION SITE VESICLES [None]
  - RASH GENERALISED [None]
  - INJECTION SITE PAIN [None]
  - DYSPNOEA [None]
  - PAIN IN EXTREMITY [None]
